FAERS Safety Report 15506488 (Version 2)
Quarter: 2018Q4

REPORT INFORMATION
  Report Type: Report from Study
  Country: US (occurrence: US)
  Receive Date: 20181016
  Receipt Date: 20181029
  Transmission Date: 20190205
  Serious: Yes (Other)
  Sender: FDA-Public Use
  Company Number: US-ROCHE-2200739

PATIENT

DRUGS (2)
  1. IPILIMUMAB [Suspect]
     Active Substance: IPILIMUMAB
     Indication: MALIGNANT MELANOMA
     Dosage: 3 MG/KG IV EVERY 3 WEEKS X 4 DOSES (INDUCTION), THEN EVERY 3 MONTHS (MAINTENANCE): AS PER PROTOCOL
     Route: 042
  2. BEVACIZUMAB. [Suspect]
     Active Substance: BEVACIZUMAB
     Indication: MALIGNANT MELANOMA
     Dosage: CONTINUOUS: AS PER PROOTOCOL
     Route: 042

REACTIONS (1)
  - Metastasis [Recovered/Resolved]

NARRATIVE: CASE EVENT DATE: 20120115
